FAERS Safety Report 9612496 (Version 1)
Quarter: 2013Q4

REPORT INFORMATION
  Report Type: Spontaneous
  Country: US (occurrence: None)
  Receive Date: 20131008
  Receipt Date: 20131008
  Transmission Date: 20140711
  Serious: Yes (Other)
  Sender: FDA-Public Use
  Company Number: SYM-2013-11231

PATIENT
  Age: 53 Year
  Sex: Male
  Weight: 74.84 kg

DRUGS (2)
  1. XENAZINE [Suspect]
     Indication: TARDIVE DYSKINESIA
     Route: 048
     Dates: start: 20130926
  2. XENAZINE [Suspect]
     Indication: OFF LABEL USE
     Route: 048
     Dates: start: 20130926

REACTIONS (5)
  - Muscle spasms [None]
  - Facial spasm [None]
  - Respiratory disorder [None]
  - Dyspnoea [None]
  - Throat tightness [None]
